FAERS Safety Report 19732819 (Version 1)
Quarter: 2021Q3

REPORT INFORMATION
  Report Type: Spontaneous
  Country: GB (occurrence: GB)
  Receive Date: 20210823
  Receipt Date: 20210823
  Transmission Date: 20211014
  Serious: Yes (Life-Threatening, Other)
  Sender: FDA-Public Use
  Company Number: GB-AMGEN-GBRSP2021128240

PATIENT
  Age: 34 Year
  Sex: Female
  Weight: 95 kg

DRUGS (6)
  1. ZOSTAVAX [Concomitant]
     Active Substance: VARICELLA-ZOSTER VIRUS STRAIN OKA/MERCK LIVE ANTIGEN
     Dosage: AS A SINGLE DOSE
     Route: 058
     Dates: start: 20210518, end: 20210518
  2. SIMVASTATIN. [Concomitant]
     Active Substance: SIMVASTATIN
     Dosage: AT NIGHT
     Dates: start: 20210812
  3. MMR VACCIN [Concomitant]
     Active Substance: MEASLES-MUMPS-RUBELLA VIRUS VACCINE
     Dosage: UNK
     Dates: start: 20210706, end: 20210706
  4. ADALIMUMAB [Suspect]
     Active Substance: ADALIMUMAB
     Indication: PRODUCT USED FOR UNKNOWN INDICATION
     Dosage: 40 MILLIGRAM, QD
     Route: 065
     Dates: start: 20210812, end: 20210812
  5. DTPA IPV HIB VACCINE [Concomitant]
     Active Substance: DIPHTHERIA AND TETANUS TOXOIDS AND ACELLULAR PERTUSSIS ADSORBED, INACTIVATED POLIOVIRUS AND HAEMOPHILUS B CONJUGATE (TETANUS TOXOID CONJUGATE) VACCINE
     Dosage: UNK
     Dates: start: 20210706, end: 20210706
  6. FLUCELVAX TETRA [INFLUENZA VACCINE INACT SAG 4V] [Concomitant]
     Dosage: AS DIRECTED
     Dates: start: 20210730, end: 20210730

REACTIONS (1)
  - Anaphylactic reaction [Not Recovered/Not Resolved]

NARRATIVE: CASE EVENT DATE: 20210812
